FAERS Safety Report 5324968-4 (Version None)
Quarter: 2007Q2

REPORT INFORMATION
  Report Type: 
  Country: None (occurrence: None)
  Receive Date: 20070510
  Receipt Date: 20070510
  Transmission Date: 20071010
  Serious: Yes (Hospitalization)
  Sender: FDA-Public Use
  Company Number: None

PATIENT
  Age: 66 Year
  Sex: Male

DRUGS (10)
  1. METHOTREXATE [Suspect]
     Indication: PSORIATIC ARTHROPATHY
     Dosage: 15MG WEEKLY ORAL
     Route: 048
     Dates: start: 20010110, end: 20070118
  2. ETANERCEPT [Concomitant]
  3. SULFASALAZINE [Concomitant]
  4. METFORMIN HCL [Concomitant]
  5. ENALAPRIL [Concomitant]
  6. OMEPRAZOLE [Concomitant]
  7. FLUNISOLIDE [Concomitant]
  8. LORATADINE [Concomitant]
  9. FOLIC ACID [Concomitant]
  10. ALBUTEROL [Concomitant]

REACTIONS (2)
  - ALVEOLITIS ALLERGIC [None]
  - PYREXIA [None]
